FAERS Safety Report 6525243-2 (Version None)
Quarter: 2010Q1

REPORT INFORMATION
  Report Type: 
  Country: None (occurrence: None)
  Receive Date: 20100104
  Receipt Date: 20091228
  Transmission Date: 20100710
  Serious: Yes (Other)
  Sender: FDA-Public Use
  Company Number: US-ROCHE-670927

PATIENT
  Sex: Female
  Weight: 59 kg

DRUGS (15)
  1. BONIVA [Suspect]
     Indication: OSTEOPOROSIS
     Route: 048
     Dates: start: 20010101
  2. BONIVA [Suspect]
     Route: 048
     Dates: end: 20090801
  3. BONIVA [Suspect]
     Route: 048
     Dates: start: 20091109, end: 20091201
  4. FOSAMAX [Suspect]
     Indication: OSTEOPOROSIS
     Route: 048
  5. SYNTHROID [Concomitant]
     Indication: HYPOTHYROIDISM
     Route: 048
  6. MACROBID [Concomitant]
  7. DETROL [Concomitant]
  8. ZANTAC [Concomitant]
     Indication: DYSPEPSIA
     Dosage: DOSE: 150; FREQ: EVERY DAY
     Route: 048
  9. LASIX [Concomitant]
     Dosage: FREQUENCY EVERY DAY; DOSE: 40
     Route: 048
  10. DIGITALIS TAB [Concomitant]
  11. CENTRUM SENIOR [Concomitant]
  12. GLUCOSAMINE [Concomitant]
  13. ALLOPURINOL [Concomitant]
  14. CALCIUM [Concomitant]
  15. POTASSIUM CHLORIDE [Concomitant]
     Route: 048

REACTIONS (5)
  - FALL [None]
  - JAW DISORDER [None]
  - OSTEONECROSIS [None]
  - TOOTH ABSCESS [None]
  - TOOTH FRACTURE [None]
